FAERS Safety Report 26138355 (Version 2)
Quarter: 2025Q4

REPORT INFORMATION
  Report Type: Report from Study
  Country: US (occurrence: None)
  Receive Date: 20251210
  Receipt Date: 20251224
  Transmission Date: 20260117
  Serious: Yes (Hospitalization)
  Sender: UCB
  Company Number: US-UCBSA-2025078008

PATIENT
  Age: 71 Year

DRUGS (2)
  1. LEVETIRACETAM [Suspect]
     Active Substance: LEVETIRACETAM
     Indication: Epilepsy
     Dosage: 500 MILLIGRAM 3T BID
     Route: 061
  2. LEVETIRACETAM [Suspect]
     Active Substance: LEVETIRACETAM
     Indication: Seizure

REACTIONS (6)
  - Cardiac disorder [Unknown]
  - Hysteroscopy [Unknown]
  - Fatigue [Unknown]
  - Hypersomnia [Unknown]
  - Anxiety [Unknown]
  - Product dose omission issue [Unknown]
